FAERS Safety Report 6690057-X (Version None)
Quarter: 2010Q2

REPORT INFORMATION
  Report Type: 
  Country: None (occurrence: None)
  Receive Date: 20100421
  Receipt Date: 20100413
  Transmission Date: 20101027
  Serious: Yes (Hospitalization, Other)
  Sender: FDA-Public Use
  Company Number: PHHY2010FR23729

PATIENT
  Age: 75 Year
  Sex: Female

DRUGS (1)
  1. EXELON [Suspect]
     Route: 062

REACTIONS (2)
  - DIABETES MELLITUS [None]
  - RASH PAPULAR [None]
